FAERS Safety Report 16384535 (Version 2)
Quarter: 2019Q3

REPORT INFORMATION
  Report Type: Spontaneous
  Country: US (occurrence: US)
  Receive Date: 20190603
  Receipt Date: 20190722
  Transmission Date: 20191004
  Serious: Yes (Other)
  Sender: FDA-Public Use
  Company Number: US-MYLANLABS-2019M1051245

PATIENT
  Sex: Female
  Weight: 54 kg

DRUGS (3)
  1. CLONIDINE TRANSDERMAL SYSTEM [Suspect]
     Active Substance: CLONIDINE
     Indication: BLOOD PRESSURE ABNORMAL
     Dosage: UNK
     Route: 062
     Dates: start: 201811
  2. CLONIDINE HCL ACTAVIS [Concomitant]
     Active Substance: CLONIDINE HYDROCHLORIDE
     Indication: PRODUCT USED FOR UNKNOWN INDICATION
     Dosage: UNK UNK, PRN
  3. XARELTO [Concomitant]
     Active Substance: RIVAROXABAN
     Indication: PRODUCT USED FOR UNKNOWN INDICATION
     Dosage: EVENING

REACTIONS (5)
  - Application site erythema [Unknown]
  - Blood pressure increased [Recovering/Resolving]
  - Application site burn [Unknown]
  - Drug ineffective [Recovering/Resolving]
  - Application site vesicles [Unknown]
